FAERS Safety Report 14038362 (Version 6)
Quarter: 2017Q4

REPORT INFORMATION
  Report Type: Spontaneous
  Country: KR (occurrence: KR)
  Receive Date: 20171004
  Receipt Date: 20171121
  Transmission Date: 20180321
  Serious: Yes (Other)
  Sender: FDA-Public Use
  Company Number: PHHY2017KR143724

PATIENT
  Sex: Female

DRUGS (5)
  1. LUCENTIS [Suspect]
     Active Substance: RANIBIZUMAB
     Indication: RETINOPATHY OF PREMATURITY
     Dosage: UNK
     Route: 031
  2. ALCAINE [Concomitant]
     Active Substance: PROPARACAINE HYDROCHLORIDE
     Indication: LOCAL ANAESTHESIA
     Route: 047
  3. MYDRIN-P [Concomitant]
     Active Substance: PHENYLEPHRINE HYDROCHLORIDE\TROPICAMIDE
     Indication: MYDRIASIS
     Route: 047
  4. FENTANYL CITRATE. [Concomitant]
     Active Substance: FENTANYL CITRATE
     Indication: SEDATIVE THERAPY
     Route: 042
  5. TOBREX [Suspect]
     Active Substance: TOBRAMYCIN
     Indication: PRODUCT USED FOR UNKNOWN INDICATION
     Dosage: 1 GTT, Q6H (EYE DROPS, FOR A WEEK (BOTH EYES))
     Route: 047

REACTIONS (4)
  - Retinal haemorrhage [Unknown]
  - Product use in unapproved indication [Unknown]
  - Retinopathy of prematurity [Unknown]
  - Vitreous haemorrhage [Unknown]
